FAERS Safety Report 8112874-1 (Version None)
Quarter: 2012Q1

REPORT INFORMATION
  Report Type: 
  Country: None (occurrence: None)
  Receive Date: 20120203
  Receipt Date: 20120201
  Transmission Date: 20120608
  Serious: Yes (Hospitalization)
  Sender: FDA-Public Use
  Company Number: US-GILEAD-2012-0049263

PATIENT
  Sex: Female

DRUGS (5)
  1. REMODULIN [Concomitant]
  2. REVATIO [Concomitant]
  3. OXYGEN [Concomitant]
  4. LETAIRIS [Suspect]
     Indication: PULMONARY HYPERTENSION
     Dosage: 5 MG, UNK
     Route: 048
     Dates: start: 20090514
  5. LETAIRIS [Suspect]
     Indication: IDIOPATHIC PULMONARY FIBROSIS

REACTIONS (3)
  - PNEUMONIA [None]
  - FLUID OVERLOAD [None]
  - HYPOXIA [None]
